FAERS Safety Report 6275452-5 (Version None)
Quarter: 2009Q3

REPORT INFORMATION
  Report Type: 
  Country: None (occurrence: None)
  Receive Date: 20090721
  Receipt Date: 20090709
  Transmission Date: 20100115
  Serious: Yes (Hospitalization)
  Sender: FDA-Public Use
  Company Number: GB-PFIZER INC-2006056147

PATIENT
  Age: 51 Year

DRUGS (13)
  1. SUNITINIB MALATE [Suspect]
     Indication: GASTROINTESTINAL STROMAL TUMOUR
     Dosage: 50 MG, 1X/DAY
     Route: 048
     Dates: start: 20060420
  2. MORPHINE [Concomitant]
     Route: 058
     Dates: start: 20060320
  3. METOCLOPRAMIDE [Concomitant]
     Route: 058
     Dates: start: 20060320
  4. VENLAFAXINE HYDROCHLORIDE [Concomitant]
     Route: 048
     Dates: start: 20020801
  5. DIAZEPAM [Concomitant]
     Route: 048
     Dates: start: 20051101
  6. TEMAZEPAM [Concomitant]
     Route: 048
     Dates: start: 20020801
  7. AMOXICILLIN [Concomitant]
     Route: 048
     Dates: start: 20050801
  8. NULYTELY [Concomitant]
     Route: 048
     Dates: start: 20060320
  9. DEXAMETHASONE [Concomitant]
     Route: 048
     Dates: start: 20060320
  10. ORAMORPH SR [Concomitant]
     Route: 048
     Dates: start: 20060320
  11. DICLOFENAC [Concomitant]
     Route: 048
     Dates: start: 20060401
  12. DAKTARIN [Concomitant]
     Route: 048
     Dates: start: 20060401
  13. LANSOPRAZOLE [Concomitant]
     Route: 048
     Dates: start: 20060320

REACTIONS (1)
  - CHEST PAIN [None]
